FAERS Safety Report 21499229 (Version 1)
Quarter: 2022Q4

REPORT INFORMATION
  Report Type: Spontaneous
  Country: US (occurrence: None)
  Receive Date: 20221023
  Receipt Date: 20221023
  Transmission Date: 20230112
  Serious: Yes (Other)
  Sender: FDA-Public Use
  Company Number: None

PATIENT
  Age: 46 Year
  Sex: Female
  Weight: 55.35 kg

DRUGS (2)
  1. PREDNISONE [Suspect]
     Active Substance: PREDNISONE
     Indication: Ligament sprain
     Dosage: OTHER FREQUENCY : 12 DAY TAPER;?
     Route: 048
     Dates: start: 20221007, end: 20221018
  2. PREDNISONE [Suspect]
     Active Substance: PREDNISONE
     Indication: Sciatica

REACTIONS (14)
  - Myalgia [None]
  - Myalgia [None]
  - Insomnia [None]
  - Muscle twitching [None]
  - Muscle twitching [None]
  - Muscle spasms [None]
  - Muscle spasms [None]
  - Muscle spasms [None]
  - Muscle spasms [None]
  - Muscular weakness [None]
  - Muscle spasms [None]
  - Neuralgia [None]
  - Muscle tightness [None]
  - Plantar fasciitis [None]

NARRATIVE: CASE EVENT DATE: 20221015
